FAERS Safety Report 8418212-9 (Version None)
Quarter: 2012Q2

REPORT INFORMATION
  Report Type: 
  Country: None (occurrence: None)
  Receive Date: 20120531
  Receipt Date: 20120521
  Transmission Date: 20120825
  Serious: Yes (Other)
  Sender: FDA-Public Use
  Company Number: 1278342

PATIENT
  Age: 63 Year
  Sex: Female
  Weight: 33.1126 kg

DRUGS (1)
  1. PACLITAXEL [Suspect]
     Indication: BREAST CANCER
     Dosage: UNKNOWN
     Dates: start: 20110303, end: 20110303

REACTIONS (1)
  - ANAPHYLACTOID REACTION [None]
